FAERS Safety Report 4622661-4 (Version None)
Quarter: 2005Q1

REPORT INFORMATION
  Report Type: 
  Country: None (occurrence: None)
  Receive Date: 20050330
  Receipt Date: 20041202
  Transmission Date: 20050727
  Serious: No
  Sender: FDA-Public Use
  Company Number: US-BRISTOL-MYERS SQUIBB COMPANY-12782645

PATIENT
  Sex: Male
  Weight: 85 kg

DRUGS (9)
  1. REYATAZ [Suspect]
     Indication: HIV INFECTION
     Route: 048
     Dates: start: 20041124
  2. EPIVIR [Suspect]
     Indication: HIV INFECTION
  3. VIREAD [Suspect]
     Indication: HIV INFECTION
  4. NORVIR [Suspect]
     Indication: HIV INFECTION
  5. ALBUTEROL [Concomitant]
     Indication: ASTHMA
     Route: 055
  6. FERROUS SULFATE TAB [Concomitant]
  7. SINGULAIR [Concomitant]
  8. ADVAIR DISKUS 100/50 [Concomitant]
  9. ALLEGRA [Concomitant]

REACTIONS (2)
  - CARDIAC FLUTTER [None]
  - GASTROINTESTINAL DISORDER [None]
